FAERS Safety Report 19847960 (Version 1)
Quarter: 2021Q3

REPORT INFORMATION
  Report Type: Spontaneous
  Country: US (occurrence: US)
  Receive Date: 20210917
  Receipt Date: 20210917
  Transmission Date: 20211014
  Serious: No
  Sender: FDA-Public Use
  Company Number: US-AMNEAL PHARMACEUTICALS-2021-AMRX-02750

PATIENT
  Age: 62 Year
  Sex: Female
  Weight: 53.06 kg

DRUGS (3)
  1. GABAPENTIN. [Suspect]
     Active Substance: GABAPENTIN
     Dosage: 5 CAPSULES, DAILY, 2 CAPSULES IN THE MORNING , 3 CAPSULES AT NIGHT
     Route: 048
     Dates: start: 2018, end: 2021
  2. GABAPENTIN. [Suspect]
     Active Substance: GABAPENTIN
     Indication: SPINAL OSTEOARTHRITIS
     Dosage: 5 CAPSULES, QD, 2 CAPSULES IN THE MORNING , 3 CAPSULES AT NIGHT
     Route: 048
     Dates: start: 20210707
  3. GABAPENTIN. [Suspect]
     Active Substance: GABAPENTIN
     Dosage: 1 CAPSULES, MORNING
     Route: 048
     Dates: start: 2021, end: 20210706

REACTIONS (3)
  - Nausea [Not Recovered/Not Resolved]
  - Fatigue [Not Recovered/Not Resolved]
  - Product use in unapproved indication [Unknown]

NARRATIVE: CASE EVENT DATE: 2018
